FAERS Safety Report 14249758 (Version 2)
Quarter: 2018Q1

REPORT INFORMATION
  Report Type: Spontaneous
  Country: US (occurrence: US)
  Receive Date: 20171205
  Receipt Date: 20180206
  Transmission Date: 20180508
  Serious: Yes (Hospitalization, Other)
  Sender: FDA-Public Use
  Company Number: US-SUN PHARMACEUTICAL INDUSTRIES LTD-2017US-156090

PATIENT
  Age: 8 Year
  Sex: Male

DRUGS (10)
  1. TACROLIMUS. [Suspect]
     Active Substance: TACROLIMUS
     Indication: IMMUNOSUPPRESSION
     Dosage: 5-8 NG/ML
     Route: 061
  2. BETAMETHASONE DIPROPIONATE. [Suspect]
     Active Substance: BETAMETHASONE DIPROPIONATE
     Indication: IMMUNOSUPPRESSION
     Route: 061
  3. MYCOPHENOLATE [Suspect]
     Active Substance: MYCOPHENOLIC ACID
     Indication: IMMUNOSUPPRESSION
     Dosage: 600 MG/M2, UNK
     Route: 042
  4. PREDNISONE. [Suspect]
     Active Substance: PREDNISONE
     Indication: IMMUNOSUPPRESSION
     Dosage: 5 MG, DAILY
     Route: 048
  5. FLUCONAZOLE. [Suspect]
     Active Substance: FLUCONAZOLE
     Indication: PRODUCT USED FOR UNKNOWN INDICATION
     Dosage: 3 MG/KG, DAILY
     Route: 065
  6. THYMOGLOBULIN [Suspect]
     Active Substance: LAPINE T-LYMPHOCYTE IMMUNE GLOBULIN
     Indication: IMMUNOSUPPRESSION
     Dosage: 1?5 MG/KG FOR 4 DAYS
     Route: 065
  7. SIROLIMUS. [Suspect]
     Active Substance: SIROLIMUS
     Indication: IMMUNOSUPPRESSION
     Dosage: 50-80 NG/ML
     Route: 065
  8. METHYLPREDNISOLONE. [Suspect]
     Active Substance: METHYLPREDNISOLONE
     Dosage: 15 MG/KG FOR 1 DAY FOLLOWED BY 1?5 MG/KG FOR 3 DAYS
     Route: 042
  9. METHYLPREDNISOLONE. [Suspect]
     Active Substance: METHYLPREDNISOLONE
     Indication: IMMUNOSUPPRESSION
     Dosage: 10 MG/KG
     Route: 042
  10. MYCOPHENOLATE [Suspect]
     Active Substance: MYCOPHENOLIC ACID
     Dosage: 205 MG/M2, UNK
     Route: 065

REACTIONS (9)
  - Urinary tract infection [Unknown]
  - Rhinovirus infection [Unknown]
  - Acute kidney injury [Unknown]
  - Neutropenia [Unknown]
  - Mouth ulceration [Unknown]
  - Transplant rejection [Recovered/Resolved]
  - Blood creatinine increased [Unknown]
  - Hyperlipidaemia [Unknown]
  - Emotional distress [Unknown]
